FAERS Safety Report 14157019 (Version 1)
Quarter: 2017Q4

REPORT INFORMATION
  Report Type: Spontaneous
  Country: US (occurrence: US)
  Receive Date: 20171103
  Receipt Date: 20171103
  Transmission Date: 20180321
  Serious: No
  Sender: FDA-Public Use
  Company Number: None

PATIENT
  Age: 40 Year
  Sex: Female
  Weight: 123.75 kg

DRUGS (6)
  1. FLONASE [Concomitant]
     Active Substance: FLUTICASONE PROPIONATE
  2. WOMEN^S DAILY VITAMIN [Concomitant]
  3. PROMETHAZINE DM [Suspect]
     Active Substance: DEXTROMETHORPHAN HYDROBROMIDE\PROMETHAZINE HYDROCHLORIDE
     Indication: COUGH
     Dosage: ORAL; 1 TEASPOON; 3 TIMES A DAY?
     Route: 048
     Dates: start: 20171101, end: 20171102
  4. PROMETHAZINE DM [Suspect]
     Active Substance: DEXTROMETHORPHAN HYDROBROMIDE\PROMETHAZINE HYDROCHLORIDE
     Indication: OROPHARYNGEAL PAIN
     Dosage: ORAL; 1 TEASPOON; 3 TIMES A DAY?
     Route: 048
     Dates: start: 20171101, end: 20171102
  5. PROBIOTIC GUMMIES [Concomitant]
  6. ZYRTEC [Concomitant]
     Active Substance: CETIRIZINE HYDROCHLORIDE

REACTIONS (7)
  - Cough [None]
  - Upper-airway cough syndrome [None]
  - Off label use [None]
  - Dysphagia [None]
  - Drug ineffective [None]
  - Oropharyngeal pain [None]
  - Choking [None]

NARRATIVE: CASE EVENT DATE: 20171101
